FAERS Safety Report 17509086 (Version 1)
Quarter: 2020Q1

REPORT INFORMATION
  Report Type: Report from Study
  Country: US (occurrence: US)
  Receive Date: 20200306
  Receipt Date: 20200306
  Transmission Date: 20200409
  Serious: Yes (Other)
  Sender: FDA-Public Use
  Company Number: US-GLAXOSMITHKLINE-US2020AMR040774

PATIENT
  Age: 47 Year
  Sex: Female

DRUGS (1)
  1. BELIMUMAB [Suspect]
     Active Substance: BELIMUMAB
     Indication: SYSTEMIC LUPUS ERYTHEMATOSUS
     Dosage: 600 MG
     Route: 065
     Dates: start: 2013

REACTIONS (6)
  - Drug intolerance [Unknown]
  - Nausea [Unknown]
  - Tremor [Unknown]
  - Systemic lupus erythematosus [Unknown]
  - Spinal pain [Unknown]
  - Facial spasm [Unknown]

NARRATIVE: CASE EVENT DATE: 2019
